FAERS Safety Report 13495421 (Version 1)
Quarter: 2017Q2

REPORT INFORMATION
  Report Type: Report from Study
  Country: BR (occurrence: BR)
  Receive Date: 20170428
  Receipt Date: 20170428
  Transmission Date: 20170830
  Serious: Yes (Hospitalization)
  Sender: FDA-Public Use
  Company Number: PHHY2017BR062648

PATIENT
  Sex: Female
  Weight: 79 kg

DRUGS (1)
  1. EXELON PATCH [Suspect]
     Active Substance: RIVASTIGMINE
     Indication: DEMENTIA ALZHEIMER^S TYPE
     Dosage: 13.3 MG, QD PATCH 15 CM2
     Route: 062

REACTIONS (3)
  - Dyspnoea [Unknown]
  - Fatigue [Unknown]
  - Pleural effusion [Unknown]
